FAERS Safety Report 9958620 (Version 1)
Quarter: 2014Q1

REPORT INFORMATION
  Report Type: Report from Study
  Country: US (occurrence: US)
  Receive Date: 20140305
  Receipt Date: 20140305
  Transmission Date: 20141002
  Serious: Yes (Other)
  Sender: FDA-Public Use
  Company Number: US-ROCHE-1332868

PATIENT
  Age: 74 Year
  Sex: Female

DRUGS (5)
  1. LUCENTIS [Suspect]
     Indication: RETINAL OEDEMA
     Route: 050
  2. LUCENTIS [Suspect]
     Dosage: OS, THE PATIENT RECEIVED A DOSE ON 06/JUN/2011, 06/JUL/2011, 15/AUG/2011 AND 12/SEP/2011
     Route: 065
  3. AKTEN [Concomitant]
  4. MIDODRINE [Concomitant]
  5. TOPROL XL [Concomitant]

REACTIONS (3)
  - Cerebrovascular accident [Unknown]
  - Therapeutic response decreased [Unknown]
  - Visual acuity reduced [Unknown]
